FAERS Safety Report 10394273 (Version 1)
Quarter: 2014Q3

REPORT INFORMATION
  Report Type: Spontaneous
  Country: FR (occurrence: FR)
  Receive Date: 20140819
  Receipt Date: 20140819
  Transmission Date: 20150326
  Serious: Yes (Hospitalization)
  Sender: FDA-Public Use
  Company Number: FR-ASTRAZENECA-2014SE60784

PATIENT
  Age: 41 Year
  Sex: Female

DRUGS (7)
  1. KEPPRA [Suspect]
     Active Substance: LEVETIRACETAM
     Route: 048
     Dates: start: 2009
  2. INEXIUM [Suspect]
     Active Substance: ESOMEPRAZOLE
     Route: 048
  3. HYDROCORTISONE. [Suspect]
     Active Substance: HYDROCORTISONE
     Route: 048
     Dates: start: 2009
  4. MINIRIN [Suspect]
     Active Substance: DESMOPRESSIN ACETATE
     Indication: DIABETES INSIPIDUS
     Route: 045
     Dates: start: 2009
  5. LANTUS [Suspect]
     Active Substance: INSULIN GLARGINE
     Route: 058
  6. LEVOTHYROX [Suspect]
     Active Substance: LEVOTHYROXINE
     Route: 048
     Dates: start: 2009
  7. PARACETAMOL [Suspect]
     Active Substance: ACETAMINOPHEN
     Route: 048

REACTIONS (2)
  - Hyperammonaemia [Recovering/Resolving]
  - Reye^s syndrome [Recovering/Resolving]

NARRATIVE: CASE EVENT DATE: 20111010
